FAERS Safety Report 6566249-7 (Version None)
Quarter: 2010Q1

REPORT INFORMATION
  Report Type: 
  Country: None (occurrence: None)
  Receive Date: 20100202
  Receipt Date: 20100129
  Transmission Date: 20100710
  Serious: Yes (Life-Threatening, Hospitalization)
  Sender: FDA-Public Use
  Company Number: DE-ASTRAZENECA-2009SE26115

PATIENT
  Age: 13 Year
  Sex: Male
  Weight: 109 kg

DRUGS (3)
  1. SEROQUEL [Suspect]
     Indication: MENTAL RETARDATION
     Route: 048
     Dates: end: 20091020
  2. PROPOFOL [Suspect]
     Indication: SEDATION
     Route: 042
     Dates: start: 20091021, end: 20091024
  3. ISOFLURANE [Suspect]
     Indication: SEDATION
     Dosage: }1 L
     Route: 055

REACTIONS (3)
  - BLOOD CREATINE PHOSPHOKINASE INCREASED [None]
  - HYPERTHERMIA MALIGNANT [None]
  - NEUROLEPTIC MALIGNANT SYNDROME [None]
